FAERS Safety Report 12100898 (Version 1)
Quarter: 2016Q1

REPORT INFORMATION
  Report Type: Spontaneous
  Country: US (occurrence: US)
  Receive Date: 20160222
  Receipt Date: 20160222
  Transmission Date: 20160526
  Serious: No
  Sender: FDA-Public Use
  Company Number: US-ASTRAZENECA-2016SE15100

PATIENT

DRUGS (1)
  1. SYNAGIS [Suspect]
     Active Substance: PALIVIZUMAB
     Dosage: MONTHLY
     Route: 030

REACTIONS (5)
  - Erythema [Unknown]
  - Rash macular [Unknown]
  - Pruritus [Unknown]
  - Irritability [Unknown]
  - Urticaria [Unknown]

NARRATIVE: CASE EVENT DATE: 20160210
